FAERS Safety Report 15950305 (Version 2)
Quarter: 2019Q1

REPORT INFORMATION
  Report Type: Spontaneous
  Country: US (occurrence: US)
  Receive Date: 20190211
  Receipt Date: 20190314
  Transmission Date: 20190417
  Serious: No
  Sender: FDA-Public Use
  Company Number: US-009507513-1902USA002063

PATIENT
  Age: 32 Year
  Sex: Female

DRUGS (4)
  1. SULFAMETHOXAZOLE (+) TRIMETHOPRIM [Concomitant]
     Active Substance: SULFAMETHOXAZOLE\TRIMETHOPRIM
     Indication: MASTITIS BACTERIAL
  2. DOXYCYCLINE. [Concomitant]
     Active Substance: DOXYCYCLINE
     Indication: MASTITIS BACTERIAL
  3. CLINDAMYCIN. [Concomitant]
     Active Substance: CLINDAMYCIN
     Indication: MASTITIS BACTERIAL
  4. CUBICIN [Suspect]
     Active Substance: DAPTOMYCIN
     Indication: MASTITIS BACTERIAL
     Dosage: UNK

REACTIONS (1)
  - Product use in unapproved indication [Unknown]
